FAERS Safety Report 17329735 (Version 1)
Quarter: 2020Q1

REPORT INFORMATION
  Report Type: Spontaneous
  Country: US (occurrence: US)
  Receive Date: 20200127
  Receipt Date: 20200127
  Transmission Date: 20200409
  Serious: Yes (Hospitalization)
  Sender: FDA-Public Use
  Company Number: None

PATIENT
  Age: 27 Year
  Sex: Male
  Weight: 121.5 kg

DRUGS (3)
  1. LAMOTRIGINE 100MG TABLET [Suspect]
     Active Substance: LAMOTRIGINE
     Indication: SEIZURE
     Dosage: ?          QUANTITY:1 TABLET(S);?
     Route: 048
     Dates: start: 20200103, end: 20200126
  2. LORAZEPAM. [Concomitant]
     Active Substance: LORAZEPAM
  3. KEPPRA [Concomitant]
     Active Substance: LEVETIRACETAM

REACTIONS (3)
  - Aura [None]
  - Drug ineffective [None]
  - Recalled product administered [None]

NARRATIVE: CASE EVENT DATE: 20200125
